FAERS Safety Report 13072765 (Version 1)
Quarter: 2016Q4

REPORT INFORMATION
  Report Type: Spontaneous
  Country: US (occurrence: US)
  Receive Date: 20161229
  Receipt Date: 20161229
  Transmission Date: 20170207
  Serious: Yes (Life-Threatening, Hospitalization)
  Sender: FDA-Public Use
  Company Number: US-SA-2016SA107342

PATIENT
  Age: 73 Year
  Sex: Female
  Weight: 47.6 kg

DRUGS (20)
  1. VELIPARIB [Suspect]
     Active Substance: VELIPARIB
     Indication: NEOPLASM
     Route: 048
     Dates: start: 20160222, end: 20160307
  2. MEGACE [Concomitant]
     Active Substance: MEGESTROL ACETATE
     Indication: DECREASED APPETITE
     Route: 048
     Dates: start: 201602
  3. PACLITAXEL. [Suspect]
     Active Substance: PACLITAXEL
     Indication: NEOPLASM
     Route: 042
     Dates: start: 20160222, end: 20160315
  4. CARBOPLATIN. [Suspect]
     Active Substance: CARBOPLATIN
     Indication: NEOPLASM
     Dosage: AUC 6: DAY 1 OF EACH CYCLE
     Route: 042
     Dates: start: 20160222
  5. A AND D [Concomitant]
     Active Substance: DIMETHICONE\PETROLATUM\ZINC OXIDE
     Indication: VAGINAL INFLAMMATION
     Route: 061
     Dates: start: 20160301
  6. POTASSIUM CHLORIDE. [Concomitant]
     Active Substance: POTASSIUM CHLORIDE
     Indication: BLOOD POTASSIUM DECREASED
     Route: 048
     Dates: start: 20160229
  7. ULTRAM [Concomitant]
     Active Substance: TRAMADOL HYDROCHLORIDE
     Indication: PROCEDURAL PAIN
     Route: 048
     Dates: start: 201601
  8. PERCOCET [Concomitant]
     Active Substance: ACETAMINOPHEN\OXYCODONE HYDROCHLORIDE
     Indication: PROCEDURAL PAIN
     Dosage: 10/325 MG
     Route: 048
     Dates: start: 20020209
  9. TAMOXIFEN [Concomitant]
     Active Substance: TAMOXIFEN
     Indication: HORMONE THERAPY
     Route: 048
     Dates: start: 2012, end: 20160302
  10. TAXOTERE [Suspect]
     Active Substance: DOCETAXEL
     Indication: NEOPLASM
     Route: 042
     Dates: start: 20160404
  11. PALONOSETRON [Concomitant]
     Active Substance: PALONOSETRON
     Indication: PREMEDICATION
     Dosage: 0.25 MG, PRIOR TO CHEMO
     Route: 042
     Dates: start: 20160222
  12. DEXAMETHASONE. [Concomitant]
     Active Substance: DEXAMETHASONE
     Indication: PREMEDICATION
     Dosage: PRIOR TO CHEMO 10 MG
     Route: 042
     Dates: start: 20160222
  13. MIRALAX [Concomitant]
     Active Substance: POLYETHYLENE GLYCOL 3350
     Indication: CONSTIPATION
     Dosage: DOSE:1 OUNCE
     Route: 048
     Dates: start: 201512
  14. RANITIDINE. [Concomitant]
     Active Substance: RANITIDINE
     Indication: PREMEDICATION
     Dosage: PRIOR TO CHEMO 50 MG
     Route: 042
     Dates: start: 20160222
  15. DEXAMETHASONE. [Concomitant]
     Active Substance: DEXAMETHASONE
     Indication: HYPERSENSITIVITY
     Route: 042
     Dates: start: 20160307, end: 20160307
  16. DIPHENHYDRAMINE. [Concomitant]
     Active Substance: DIPHENHYDRAMINE
     Indication: PREMEDICATION
     Dosage: PRIOR TO CHEMO 25 MG
     Route: 042
     Dates: start: 20160222
  17. BENADRYL [Concomitant]
     Active Substance: DIPHENHYDRAMINE HYDROCHLORIDE
     Indication: HYPERSENSITIVITY
     Route: 042
     Dates: start: 20160307, end: 20160307
  18. ZOFRAN [Concomitant]
     Active Substance: ONDANSETRON HYDROCHLORIDE
     Indication: NAUSEA
     Route: 048
     Dates: start: 201602
  19. ALLEGRA [Concomitant]
     Active Substance: FEXOFENADINE HYDROCHLORIDE
     Indication: SEASONAL ALLERGY
     Route: 048
     Dates: start: 2012
  20. LISINOPRIL. [Concomitant]
     Active Substance: LISINOPRIL
     Indication: HYPERTENSION
     Route: 048
     Dates: start: 2014

REACTIONS (2)
  - Febrile neutropenia [Recovered/Resolved]
  - Malaise [Recovered/Resolved]

NARRATIVE: CASE EVENT DATE: 20160412
